FAERS Safety Report 12230605 (Version 2)
Quarter: 2016Q2

REPORT INFORMATION
  Report Type: Report from Study
  Country: BR (occurrence: BR)
  Receive Date: 20160401
  Receipt Date: 20160503
  Transmission Date: 20160815
  Serious: Yes (Hospitalization, Other)
  Sender: FDA-Public Use
  Company Number: PHHY2015BR153520

PATIENT
  Sex: Male
  Weight: 42 kg

DRUGS (3)
  1. EXJADE [Suspect]
     Active Substance: DEFERASIROX
     Indication: SICKLE CELL ANAEMIA
     Dosage: 25 MG/KG, QD (2 DF OF 500 MG)
     Route: 048
     Dates: start: 2013
  2. TEGRETOL [Concomitant]
     Active Substance: CARBAMAZEPINE
     Indication: PRODUCT USED FOR UNKNOWN INDICATION
     Dosage: 1 DF, TID
     Route: 065
  3. EXJADE [Suspect]
     Active Substance: DEFERASIROX
     Dosage: 15 MG/KG, QD (1 DF OF 500 MG)
     Route: 048
     Dates: end: 2014

REACTIONS (11)
  - Epilepsy [Unknown]
  - Cerebrovascular accident [Unknown]
  - Drug intolerance [Unknown]
  - Abdominal pain [Unknown]
  - Diarrhoea [Recovered/Resolved]
  - Dizziness [Unknown]
  - Cachexia [Unknown]
  - Dry mouth [Unknown]
  - Nausea [Unknown]
  - Malaise [Unknown]
  - Serum ferritin increased [Unknown]
